FAERS Safety Report 10142792 (Version 1)
Quarter: 2014Q2

REPORT INFORMATION
  Report Type: Spontaneous
  Country: GB (occurrence: None)
  Receive Date: 20140428
  Receipt Date: 20140428
  Transmission Date: 20141212
  Serious: Yes (Other)
  Sender: FDA-Public Use
  Company Number: AUR-APL-2014-04823

PATIENT
  Age: 83 Year
  Sex: Male

DRUGS (9)
  1. AMOXICILLIN (AMOXICILLIN) [Suspect]
     Indication: PRODUCT USED FOR UNKNOWN INDICATION
     Dates: start: 20140328, end: 20140404
  2. ASPIRIN (ACETYLSALICYLIC ACID) [Concomitant]
  3. CLOBETASONE BUTYRATE [Concomitant]
  4. EPADERM [Concomitant]
  5. FINASTERIDE [Suspect]
  6. FUROSEMIDE (FUROSEMIDE) [Concomitant]
  7. PROPRANOLOL (PROPRANOLOL) [Concomitant]
  8. TAMSULOSIN HYDROCHLORIDE (TAMSULOSIN HYDROCHLORIDE) [Concomitant]
  9. UREA (UREA) [Concomitant]

REACTIONS (3)
  - Rash [None]
  - Urticaria [None]
  - Lip swelling [None]
